FAERS Safety Report 10713455 (Version 4)
Quarter: 2015Q2

REPORT INFORMATION
  Report Type: Spontaneous
  Country: JP (occurrence: JP)
  Receive Date: 20150115
  Receipt Date: 20150630
  Transmission Date: 20150821
  Serious: Yes (Life-Threatening)
  Sender: FDA-Public Use
  Company Number: JP-009507513-1501JPN002916

PATIENT
  Age: 70 Year
  Sex: Male

DRUGS (8)
  1. SUNRYTHM [Concomitant]
     Active Substance: PILSICAINIDE HYDROCHLORIDE
     Indication: ARRHYTHMIA
     Dosage: 50 MG, BID
     Route: 048
  2. GASMOTIN [Concomitant]
     Active Substance: MOSAPRIDE CITRATE
     Indication: GASTRIC DISORDER
     Dosage: 5 MG, BID
     Route: 048
  3. NU-LOTAN TABLET 50 [Suspect]
     Active Substance: LOSARTAN
     Indication: HYPERTENSION
     Dosage: TOTAL DAILY DOSE 50MG
     Route: 048
     Dates: start: 20140425, end: 20140529
  4. PARIET [Concomitant]
     Active Substance: RABEPRAZOLE SODIUM
     Indication: GASTRIC DISORDER
     Dosage: 10 MG, QD
     Route: 048
  5. BAYASPIRIN [Concomitant]
     Active Substance: ASPIRIN
     Indication: PROPHYLAXIS
     Dosage: TOTAL DAILY DOSE 100MG
     Route: 048
  6. ARTIST [Concomitant]
     Active Substance: CARVEDILOL
     Indication: HYPERTENSION
     Dosage: 10 MG, QD
     Route: 048
  7. WARFARIN [Concomitant]
     Active Substance: WARFARIN
     Indication: PROPHYLAXIS
     Dosage: TOTAL DAILY DOSE 4MG
     Route: 048
  8. SELBEX [Concomitant]
     Active Substance: TEPRENONE
     Indication: GASTRIC DISORDER
     Dosage: 50 MG, BID
     Route: 048

REACTIONS (1)
  - Anaphylactic reaction [Recovered/Resolved]

NARRATIVE: CASE EVENT DATE: 20140526
